FAERS Safety Report 22295003 (Version 1)
Quarter: 2023Q2

REPORT INFORMATION
  Report Type: Spontaneous
  Country: US (occurrence: None)
  Receive Date: 20230505
  Receipt Date: 20230505
  Transmission Date: 20230721
  Serious: Yes (Hospitalization)
  Sender: FDA-Public Use
  Company Number: None

PATIENT
  Age: 78 Year
  Sex: Female
  Weight: 70 kg

DRUGS (1)
  1. PHENYTOIN [Suspect]
     Active Substance: PHENYTOIN
     Indication: Epilepsy
     Dosage: FREQUENCY : TWICE A DAY;?

REACTIONS (11)
  - Dizziness [None]
  - Fall [None]
  - Head injury [None]
  - Confusional state [None]
  - Dysarthria [None]
  - Facial paralysis [None]
  - Mental status changes [None]
  - Dysstasia [None]
  - Toxicity to various agents [None]
  - Urinary tract infection [None]
  - Aggression [None]
